FAERS Safety Report 19585121 (Version 1)
Quarter: 2021Q3

REPORT INFORMATION
  Report Type: Other
  Country: US (occurrence: US)
  Receive Date: 20210720
  Receipt Date: 20210720
  Transmission Date: 20211014
  Serious: No
  Sender: FDA-Public Use
  Company Number: US-ROCHE-2802252

PATIENT
  Age: 64 Year
  Sex: Male

DRUGS (2)
  1. ENFORTUMAB [Suspect]
     Active Substance: ENFORTUMAB
     Indication: TRANSITIONAL CELL CARCINOMA METASTATIC
     Route: 065
  2. ATEZOLIZUMAB. [Suspect]
     Active Substance: ATEZOLIZUMAB
     Indication: TRANSITIONAL CELL CARCINOMA METASTATIC
     Route: 065

REACTIONS (1)
  - Neuropathy peripheral [Unknown]
